FAERS Safety Report 8558330 (Version 2)
Quarter: 2013Q2

REPORT INFORMATION
  Report Type: Spontaneous
  Country: US (occurrence: US)
  Receive Date: 20120511
  Receipt Date: 20130510
  Transmission Date: 20140414
  Serious: No
  Sender: FDA-Public Use
  Company Number: US-GLAXOSMITHKLINE-A0960593A

PATIENT
  Age: 55 Year
  Sex: Female

DRUGS (4)
  1. TYKERB [Suspect]
     Indication: BREAST CANCER
     Route: 048
     Dates: start: 201112
  2. IMODIUM [Concomitant]
  3. XELODA [Concomitant]
  4. ANTI-NAUSEA DRUGS [Concomitant]

REACTIONS (5)
  - Diarrhoea [Not Recovered/Not Resolved]
  - Vomiting [Not Recovered/Not Resolved]
  - Nausea [Unknown]
  - Adverse drug reaction [Unknown]
  - Rash pruritic [Not Recovered/Not Resolved]
